FAERS Safety Report 15591636 (Version 1)
Quarter: 2018Q4

REPORT INFORMATION
  Report Type: Spontaneous
  Country: US (occurrence: US)
  Receive Date: 20181107
  Receipt Date: 20181107
  Transmission Date: 20190205
  Serious: Yes (Other)
  Sender: FDA-Public Use
  Company Number: US-PFIZER INC-2018446812

PATIENT
  Age: 19 Year
  Sex: Male

DRUGS (1)
  1. PRISTIQ EXTENDED-RELEASE [Suspect]
     Active Substance: DESVENLAFAXINE SUCCINATE
     Indication: ANXIETY
     Dosage: 100 MG, UNK

REACTIONS (5)
  - Suicidal ideation [Unknown]
  - Product use in unapproved indication [Unknown]
  - Fatigue [Unknown]
  - Depression [Unknown]
  - Decreased appetite [Unknown]
